FAERS Safety Report 10328606 (Version 1)
Quarter: 2014Q3

REPORT INFORMATION
  Report Type: Spontaneous
  Country: US (occurrence: None)
  Receive Date: 20140717
  Receipt Date: 20140717
  Transmission Date: 20150326
  Serious: Yes (Other)
  Sender: FDA-Public Use
  Company Number: None

PATIENT
  Age: 48 Year
  Sex: Male
  Weight: 78.47 kg

DRUGS (1)
  1. RIZATRIPTAN 10 MG TABLET [Suspect]
     Active Substance: RIZATRIPTAN
     Indication: MIGRAINE
     Dosage: 10MG ORAL TABLET 1 AT APPT. MAY REPEAT AFTER 2 HRS
     Route: 048
     Dates: start: 201405, end: 201406

REACTIONS (1)
  - Chest discomfort [None]

NARRATIVE: CASE EVENT DATE: 20140701
